FAERS Safety Report 10071433 (Version 1)
Quarter: 2014Q2

REPORT INFORMATION
  Report Type: Spontaneous
  Country: US (occurrence: US)
  Receive Date: 20140410
  Receipt Date: 20140410
  Transmission Date: 20141212
  Serious: No
  Sender: FDA-Public Use
  Company Number: US-ENDO PHARMACEUTICALS INC.-CYCB20140002

PATIENT
  Age: 68 Year
  Sex: Male
  Weight: 95.34 kg

DRUGS (1)
  1. CYCLOBENZAPRINE HYDROCHLORIDE 10MG [Suspect]
     Indication: BACK PAIN
     Route: 048
     Dates: start: 20140122, end: 20140125

REACTIONS (2)
  - Pharyngeal oedema [Unknown]
  - Dry mouth [Not Recovered/Not Resolved]
